FAERS Safety Report 25964011 (Version 2)
Quarter: 2025Q4

REPORT INFORMATION
  Report Type: Report from Study
  Country: GB (occurrence: GB)
  Receive Date: 20251027
  Receipt Date: 20251125
  Transmission Date: 20260117
  Serious: Yes (Other)
  Sender: ALEXION PHARMACEUTICALS
  Company Number: GB-ASTRAZENECA-202510EEA019815GB

PATIENT

DRUGS (1)
  1. IMFINZI [Suspect]
     Active Substance: DURVALUMAB
     Dosage: UNK
     Route: 065
     Dates: start: 20250116, end: 20250213

REACTIONS (3)
  - Endocrine toxicity [Unknown]
  - Hypophysitis [Unknown]
  - Disease progression [Unknown]
